FAERS Safety Report 18310236 (Version 1)
Quarter: 2020Q3

REPORT INFORMATION
  Report Type: Spontaneous
  Country: CH (occurrence: CH)
  Receive Date: 20200924
  Receipt Date: 20200924
  Transmission Date: 20201103
  Serious: Yes (Hospitalization)
  Sender: FDA-Public Use
  Company Number: CH-PURDUE-USA-2020-0167672

PATIENT
  Age: 85 Year
  Sex: Male

DRUGS (20)
  1. TARGIN [Suspect]
     Active Substance: NALOXONE HYDROCHLORIDE\OXYCODONE HYDROCHLORIDE
     Indication: ANALGESIC THERAPY
     Dosage: 20 MG, BID
     Route: 065
     Dates: start: 20200722
  2. CLEXANE [Concomitant]
     Active Substance: ENOXAPARIN SODIUM
     Dosage: UNK
     Dates: start: 20200814
  3. NEXIUM [Concomitant]
     Active Substance: ESOMEPRAZOLE MAGNESIUM
  4. DAFALGAN [Concomitant]
     Active Substance: ACETAMINOPHEN
  5. VESICARE [Concomitant]
     Active Substance: SOLIFENACIN SUCCINATE
  6. LAXOBERON [Concomitant]
     Active Substance: SODIUM PICOSULFATE
     Dosage: UNK, PRN
  7. MOVICOL [Concomitant]
     Active Substance: POLYETHYLENE GLYCOL 3350\POTASSIUM CHLORIDE\SODIUM BICARBONATE\SODIUM CHLORIDE
  8. TORASEMIDE [Suspect]
     Active Substance: TORSEMIDE
     Indication: PROPHYLAXIS
     Dosage: 2.5 MG, DAILY
     Route: 065
     Dates: start: 20200814
  9. CLYSSIE [Concomitant]
     Dosage: UNK, PRN
     Dates: start: 20200814
  10. TORASEMIDE [Suspect]
     Active Substance: TORSEMIDE
     Indication: CARDIAC FAILURE
     Dosage: 5 MG, DAILY
     Route: 065
     Dates: start: 20200701, end: 20200814
  11. ANXIOLIT [Suspect]
     Active Substance: OXAZEPAM
     Dosage: 7.5 MG, BID
     Route: 065
     Dates: start: 20200625, end: 20200814
  12. CITALOPRAM [Concomitant]
     Active Substance: CITALOPRAM HYDROBROMIDE
  13. PRADIF T [Suspect]
     Active Substance: TAMSULOSIN HYDROCHLORIDE
     Indication: PRODUCT USED FOR UNKNOWN INDICATION
     Dosage: 400 MCG, DAILY
     Route: 065
     Dates: start: 20200709
  14. ANXIOLIT [Suspect]
     Active Substance: OXAZEPAM
     Indication: PRODUCT USED FOR UNKNOWN INDICATION
     Dosage: 7.5 MG, DAILY
     Route: 065
     Dates: start: 20200814
  15. MYCOSTATINE [Concomitant]
     Active Substance: NYSTATIN
     Dosage: UNK
     Dates: start: 20020814, end: 20200818
  16. CETIRIZINE [Concomitant]
     Active Substance: CETIRIZINE HYDROCHLORIDE
     Dosage: UNK, PRN
     Dates: start: 20200814
  17. OXYNORM [Suspect]
     Active Substance: OXYCODONE HYDROCHLORIDE
     Indication: ANALGESIC THERAPY
     Dosage: 7.5 MG, MAX 3X/D, AS NECESSARY
     Route: 065
     Dates: start: 20200813
  18. PRADIF T [Suspect]
     Active Substance: TAMSULOSIN HYDROCHLORIDE
     Dosage: 400 MG, DAILY
     Route: 065
     Dates: start: 20200625, end: 20200703
  19. CALCIMAGON D3 [Concomitant]
     Active Substance: CALCIUM\CHOLECALCIFEROL
     Dosage: UNK
     Dates: start: 20200814
  20. PURSANA [Concomitant]
     Active Substance: FIG FRUIT OIL\SORBITOL

REACTIONS (2)
  - Dizziness [Not Recovered/Not Resolved]
  - Fall [Not Recovered/Not Resolved]

NARRATIVE: CASE EVENT DATE: 20200813
